FAERS Safety Report 25433004 (Version 1)
Quarter: 2025Q2

REPORT INFORMATION
  Report Type: Spontaneous
  Country: AT (occurrence: AT)
  Receive Date: 20250613
  Receipt Date: 20250613
  Transmission Date: 20250716
  Serious: Yes (Other)
  Sender: ROCHE
  Company Number: AT-ROCHE-10000309215

PATIENT
  Age: 48 Year
  Sex: Female

DRUGS (1)
  1. ALECENSA [Suspect]
     Active Substance: ALECTINIB HYDROCHLORIDE
     Indication: Lung adenocarcinoma
     Dosage: START IM APRIL 2024 OFF LABEL EINSATZ NEOADJUVANT
     Route: 048
     Dates: start: 202404

REACTIONS (6)
  - Off label use [Unknown]
  - Liver function test increased [Recovered/Resolved]
  - Post procedural inflammation [Recovered/Resolved]
  - Pyrexia [Recovered/Resolved]
  - Neck pain [Recovered/Resolved]
  - Pulmonary necrosis [Recovered/Resolved]
